FAERS Safety Report 4629070-2 (Version None)
Quarter: 2005Q2

REPORT INFORMATION
  Report Type: 
  Country: None (occurrence: None)
  Receive Date: 20050407
  Receipt Date: 20050405
  Transmission Date: 20051028
  Serious: Yes (Hospitalization)
  Sender: FDA-Public Use
  Company Number: 120

PATIENT
  Age: 63 Year
  Sex: Male
  Weight: 76 kg

DRUGS (2)
  1. MELPHALAN [Suspect]
     Indication: MULTIPLE MYELOMA
     Dosage: 200MG PER DAY
     Route: 042
     Dates: start: 20050217
  2. THALIDOMIDE [Suspect]
     Indication: MULTIPLE MYELOMA
     Dosage: 100MG PER DAY
     Route: 048
     Dates: start: 20041220

REACTIONS (12)
  - BACTERAEMIA [None]
  - BLOOD DISORDER [None]
  - BLOOD LACTATE DEHYDROGENASE INCREASED [None]
  - CARDIOVASCULAR DECONDITIONING [None]
  - COLITIS [None]
  - COUGH [None]
  - DIARRHOEA [None]
  - DYSPNOEA [None]
  - HYPOXIA [None]
  - LIVER FUNCTION TEST ABNORMAL [None]
  - PNEUMONIA [None]
  - RENAL FAILURE [None]
